FAERS Safety Report 15195754 (Version 1)
Quarter: 2018Q3

REPORT INFORMATION
  Report Type: Spontaneous
  Country: FR (occurrence: FR)
  Receive Date: 20180725
  Receipt Date: 20180725
  Transmission Date: 20181010
  Serious: Yes (Hospitalization)
  Sender: FDA-Public Use
  Company Number: FR-PFIZER INC-2018292598

PATIENT
  Age: 10 Year
  Sex: Male
  Weight: 26 kg

DRUGS (10)
  1. VINCRISTINE HOSPIRA [Suspect]
     Active Substance: VINCRISTINE
     Indication: ACUTE LYMPHOCYTIC LEUKAEMIA
     Dosage: 1.5 MG, CYCLIC
     Route: 040
     Dates: start: 20180330, end: 20180604
  2. HYDROCORTISONE UPJOHN [Concomitant]
     Active Substance: HYDROCORTISONE
     Indication: ACUTE LYMPHOCYTIC LEUKAEMIA
     Dosage: 15 MG, CYCLIC
     Route: 037
     Dates: start: 20180404, end: 20180516
  3. CERUBIDINE [Suspect]
     Active Substance: DAUNORUBICIN HYDROCHLORIDE
     Indication: ACUTE LYMPHOCYTIC LEUKAEMIA
     Dosage: 30 MG, CYCLIC
     Route: 041
     Dates: start: 20180330, end: 20180420
  4. CYTARABINE EG [Suspect]
     Active Substance: CYTARABINE
     Dosage: 75 MG, CYCLIC
     Route: 040
     Dates: start: 20180516, end: 20180526
  5. CYCLOPHOSPHAMIDE SANDOZ [Suspect]
     Active Substance: CYCLOPHOSPHAMIDE
     Indication: ACUTE LYMPHOCYTIC LEUKAEMIA
     Dosage: 1 DF, UNK
     Route: 041
     Dates: start: 20180514, end: 20180514
  6. METHOTREXATE MYLAN [Suspect]
     Active Substance: METHOTREXATE SODIUM
     Indication: ACUTE LYMPHOCYTIC LEUKAEMIA
     Dosage: 15 MG, CYCLIC
     Route: 037
     Dates: start: 20180322, end: 20180516
  7. PREDNISOLON SANDOZ [Concomitant]
     Indication: ACUTE LYMPHOCYTIC LEUKAEMIA
     Dosage: UNK
     Route: 048
     Dates: start: 20180419, end: 20180426
  8. PURINETHOL [Suspect]
     Active Substance: MERCAPTOPURINE
     Indication: ACUTE LYMPHOCYTIC LEUKAEMIA
     Dosage: 50 MG, 1X/DAY (1 DF)
     Route: 048
     Dates: start: 20180514, end: 20180527
  9. CYTARABINE EG [Suspect]
     Active Substance: CYTARABINE
     Indication: ACUTE LYMPHOCYTIC LEUKAEMIA
     Dosage: 30 MG, CYCLIC
     Route: 037
     Dates: start: 20180404, end: 20180516
  10. ONCASPAR [Suspect]
     Active Substance: PEGASPARGASE
     Indication: ACUTE LYMPHOCYTIC LEUKAEMIA
     Dosage: 1240 IU, CYCLIC
     Route: 041
     Dates: start: 20180403, end: 20180528

REACTIONS (2)
  - Pancytopenia [Recovering/Resolving]
  - Pyrexia [Recovered/Resolved]

NARRATIVE: CASE EVENT DATE: 20180604
